FAERS Safety Report 4381959-8 (Version None)
Quarter: 2004Q2

REPORT INFORMATION
  Report Type: 
  Country: None (occurrence: None)
  Receive Date: 20040615
  Receipt Date: 20040526
  Transmission Date: 20050107
  Serious: No
  Sender: FDA-Public Use
  Company Number: 2004210338IE

PATIENT
  Age: 54 Year
  Sex: Male

DRUGS (4)
  1. CAMPTOSAR [Suspect]
     Indication: COLORECTAL CANCER STAGE III
     Dosage: 387 MG, CYCLIC, IV
     Route: 042
     Dates: start: 20031201
  2. FLUOROURACIL [Suspect]
     Indication: COLORECTAL CANCER STAGE III
     Dosage: 800 MG, CYCLIC, IV BOLUS
     Route: 040
     Dates: start: 20031201
  3. FLUOROURACIL [Suspect]
     Indication: COLORECTAL CANCER STAGE III
     Dosage: 800 MG, IV
     Route: 042
     Dates: start: 20031201
  4. FOLINIC ACID (FOLINIC ACID) [Concomitant]

REACTIONS (3)
  - RASH ERYTHEMATOUS [None]
  - RASH MACULO-PAPULAR [None]
  - RASH PRURITIC [None]
